FAERS Safety Report 6420637-8 (Version None)
Quarter: 2009Q4

REPORT INFORMATION
  Report Type: 
  Country: None (occurrence: None)
  Receive Date: 20091027
  Receipt Date: 20091015
  Transmission Date: 20100525
  Serious: Yes (Other)
  Sender: FDA-Public Use
  Company Number: 235364K09USA

PATIENT
  Age: 38 Year
  Sex: Male

DRUGS (3)
  1. REBIF [Suspect]
     Indication: MULTIPLE SCLEROSIS
     Dosage: 44 MCG, 3 IN 1 WEEKS, SUBCUTANEOUS
     Route: 058
     Dates: start: 20080627
  2. UNSPECIFIED DIABETES MEDICATION (ALL OTHER THERAPEUTIC PRODUCTS) [Concomitant]
  3. UNSPECIFIED HIGH BLOOD PRESSURE MEDICATION (ALL OTHER THERAPEUTIC PROD [Concomitant]

REACTIONS (2)
  - DRUG LEVEL FLUCTUATING [None]
  - THROMBOSIS [None]
